FAERS Safety Report 14144624 (Version 1)
Quarter: 2017Q4

REPORT INFORMATION
  Report Type: Spontaneous
  Country: GB (occurrence: US)
  Receive Date: 20171031
  Receipt Date: 20171031
  Transmission Date: 20180321
  Serious: Yes (Hospitalization, Other)
  Sender: FDA-Public Use
  Company Number: GB-ALKABELLO-2017AA003618

PATIENT
  Age: 47 Year
  Sex: Male

DRUGS (1)
  1. HONEY BEE VENOM [Suspect]
     Active Substance: APIS MELLIFERA VENOM

REACTIONS (5)
  - Anaphylactic shock [Unknown]
  - Off label use [Unknown]
  - Product use in unapproved indication [Unknown]
  - Pharyngeal oedema [Unknown]
  - Overdose [Unknown]
